FAERS Safety Report 9034341 (Version 1)
Quarter: 2013Q1

REPORT INFORMATION
  Report Type: Spontaneous
  Country: US (occurrence: US)
  Receive Date: 20130128
  Receipt Date: 20130128
  Transmission Date: 20140127
  Serious: Yes (Other)
  Sender: FDA-Public Use
  Company Number: US-AMGEN-USASP2012071197

PATIENT
  Age: 62 Year
  Sex: Female
  Weight: 111.11 kg

DRUGS (13)
  1. ENBREL [Suspect]
     Indication: RHEUMATOID ARTHRITIS
     Dosage: 50 MG, ADMINISTER 1 INJECTION WEEKLY
     Route: 058
  2. FOLIC ACID [Concomitant]
     Dosage: UNK,
     Route: 048
  3. METHOTREXATE [Concomitant]
     Dosage: 2.5 MG, UNK
     Route: 048
  4. AMLODIPINE [Concomitant]
     Dosage: 10 MG, UNK
     Route: 048
  5. LIPITOR [Concomitant]
     Dosage: 10 MG, UNK
     Route: 048
  6. ZETIA [Concomitant]
     Dosage: 10 MG, UNK
     Route: 048
  7. BENAZEPRIL [Concomitant]
     Dosage: 10 MG, UNK
     Route: 048
  8. POTASSIUM [Concomitant]
     Dosage: UNK
     Route: 048
  9. FISH OIL [Concomitant]
     Dosage: UNK
     Route: 048
  10. MORTIN [Concomitant]
     Dosage: 800 MG, UNK
     Route: 048
  11. PROVENTIL                          /00139501/ [Concomitant]
     Dosage: 90 MUG, UNK
  12. PREDNISONE [Concomitant]
     Dosage: 10 MG, UNK
     Route: 048
  13. MULTIVITAMINS, PLAIN [Concomitant]
     Dosage: UNK
     Route: 048

REACTIONS (2)
  - Asthma [Unknown]
  - Upper respiratory tract infection [Unknown]
